FAERS Safety Report 4778753-2 (Version None)
Quarter: 2005Q3

REPORT INFORMATION
  Report Type: 
  Country: None (occurrence: None)
  Receive Date: 20050922
  Receipt Date: 20050912
  Transmission Date: 20060218
  Serious: Yes (Other)
  Sender: FDA-Public Use
  Company Number: 2005112038

PATIENT
  Sex: Female

DRUGS (1)
  1. NEURONTIN [Suspect]
     Indication: POLYNEUROPATHY
     Dosage: 300 MG (1 IN 1 D), ORAL
     Route: 048
     Dates: start: 20050701, end: 20050701

REACTIONS (2)
  - CEREBROVASCULAR ACCIDENT [None]
  - OVERDOSE [None]
